FAERS Safety Report 10688760 (Version 5)
Quarter: 2015Q3

REPORT INFORMATION
  Report Type: Spontaneous
  Country: US (occurrence: US)
  Receive Date: 20150103
  Receipt Date: 20150929
  Transmission Date: 20151125
  Serious: Yes (Hospitalization, Other)
  Sender: FDA-Public Use
  Company Number: US-JNJFOC-20141218613

PATIENT
  Age: 39 Year
  Sex: Male
  Weight: 102.06 kg

DRUGS (2)
  1. TYLENOL EXTRA STRENGTH [Suspect]
     Active Substance: ACETAMINOPHEN
     Indication: BACK PAIN
     Dosage: 2 TABLETS EVERY 4 HOURS; 12 PER DAY (6000 MG).
     Route: 048
     Dates: start: 20101213, end: 20101219
  2. MOTRIN [Suspect]
     Active Substance: IBUPROFEN
     Indication: PAIN
     Route: 065
     Dates: start: 20101217, end: 20101219

REACTIONS (7)
  - Hepatic failure [Recovering/Resolving]
  - Intentional overdose [Unknown]
  - Jaundice [Recovering/Resolving]
  - Hepatitis [Recovering/Resolving]
  - Accidental overdose [Unknown]
  - Drug dependence [Recovering/Resolving]
  - Hepatotoxicity [Recovering/Resolving]

NARRATIVE: CASE EVENT DATE: 201012
